FAERS Safety Report 10538388 (Version 2)
Quarter: 2014Q4

REPORT INFORMATION
  Report Type: Report from Study
  Country: FR (occurrence: FR)
  Receive Date: 20141023
  Receipt Date: 20141027
  Transmission Date: 20150529
  Serious: Yes (Hospitalization)
  Sender: FDA-Public Use
  Company Number: FR-ROCHE-1477543

PATIENT
  Age: 62 Year
  Sex: Female
  Weight: 55 kg

DRUGS (11)
  1. CARBOPLATIN. [Suspect]
     Active Substance: CARBOPLATIN
     Indication: OVARIAN CANCER
     Dosage: LAST DOSE PRIOR TO SAE: 22/AUG/2014
     Route: 065
     Dates: start: 20140618
  2. AZANTAC [Concomitant]
     Active Substance: RANITIDINE HYDROCHLORIDE
     Route: 065
     Dates: start: 20140618
  3. IMODIUM [Concomitant]
     Active Substance: LOPERAMIDE HYDROCHLORIDE
     Route: 065
     Dates: start: 20140618
  4. TARDYFERON (FRANCE) [Concomitant]
     Route: 065
     Dates: start: 20141012
  5. FRAGMINE [Concomitant]
     Active Substance: DALTEPARIN SODIUM
     Route: 065
     Dates: start: 20141012, end: 20141020
  6. CORTANCYL [Concomitant]
     Active Substance: PREDNISONE
     Route: 065
     Dates: start: 20140618
  7. VOGALENE [Concomitant]
     Active Substance: METOPIMAZINE
     Route: 065
     Dates: start: 20140618
  8. SULFARLEM [Concomitant]
     Active Substance: ANETHOLTRITHION
     Route: 065
     Dates: start: 20141012
  9. BEVACIZUMAB [Suspect]
     Active Substance: BEVACIZUMAB
     Indication: OVARIAN CANCER
     Dosage: LAST DOSE PRIOR TO SAE: 30/JUL/2014
     Route: 065
     Dates: start: 20140618
  10. PACLITAXEL. [Suspect]
     Active Substance: PACLITAXEL
     Indication: OVARIAN CANCER
     Dosage: LAST DOSE PRIOR TO SAE: 22/AUG/2014
     Route: 065
     Dates: start: 20140618
  11. XYZAL [Concomitant]
     Active Substance: LEVOCETIRIZINE DIHYDROCHLORIDE
     Route: 065
     Dates: start: 20140618

REACTIONS (1)
  - Pelvic inflammatory disease [Recovering/Resolving]

NARRATIVE: CASE EVENT DATE: 20141012
